FAERS Safety Report 21147708 (Version 3)
Quarter: 2022Q4

REPORT INFORMATION
  Report Type: Other
  Country: US (occurrence: None)
  Receive Date: 20220729
  Receipt Date: 20221207
  Transmission Date: 20230112
  Serious: Yes (Hospitalization, Other)
  Sender: FDA-Public Use
  Company Number: US-ROCHE-3148809

PATIENT
  Age: 52 Year
  Sex: Male

DRUGS (1)
  1. OCREVUS [Suspect]
     Active Substance: OCRELIZUMAB
     Indication: Primary progressive multiple sclerosis
     Dosage: NO
     Route: 042
     Dates: start: 20210714

REACTIONS (3)
  - COVID-19 pneumonia [Unknown]
  - Neutropenia [Unknown]
  - Liver function test abnormal [Unknown]
